FAERS Safety Report 17134850 (Version 1)
Quarter: 2019Q4

REPORT INFORMATION
  Report Type: Spontaneous
  Country: SK (occurrence: SK)
  Receive Date: 20191210
  Receipt Date: 20191210
  Transmission Date: 20200122
  Serious: Yes (Hospitalization, Other)
  Sender: FDA-Public Use
  Company Number: SK-JNJFOC-20191203120

PATIENT
  Age: 68 Year
  Sex: Male
  Weight: 75 kg

DRUGS (11)
  1. RIVAROXABAN [Suspect]
     Active Substance: RIVAROXABAN
     Indication: PRODUCT USED FOR UNKNOWN INDICATION
     Dosage: 20 MG, QD
     Route: 048
  2. INDAPAMID [Concomitant]
     Active Substance: INDAPAMIDE
     Dosage: UNK
  3. METOPROLOL. [Concomitant]
     Active Substance: METOPROLOL
     Dosage: UNK
  4. SUCCINIC ACID [Concomitant]
     Active Substance: SUCCINIC ACID
     Dosage: 25MG 1-0-0 TBL
     Route: 065
  5. BROMAZEPAM [Concomitant]
     Active Substance: BROMAZEPAM
     Dosage: 1.5 MG, UNK
  6. BIOPREXANIL                        /00790703/ [Concomitant]
     Active Substance: PERINDOPRIL ARGININE
     Dosage: 10/2,5/5 MG, QD
  7. AMLODIPINE [Concomitant]
     Active Substance: AMLODIPINE BESYLATE
     Dosage: UNK
  8. ATORVASTATIN [Concomitant]
     Active Substance: ATORVASTATIN
     Dosage: 80 MG, QD
  9. METFORMIN [Concomitant]
     Active Substance: METFORMIN HYDROCHLORIDE
     Dosage: 500 MG, BID
  10. RIVAROXABAN [Suspect]
     Active Substance: RIVAROXABAN
     Dosage: 15 MG
     Route: 048
  11. PANTOPRAZOLE [Concomitant]
     Active Substance: PANTOPRAZOLE
     Dosage: UNK

REACTIONS (5)
  - Dyspnoea [Unknown]
  - Haematuria [Unknown]
  - Bladder neoplasm [Unknown]
  - Chest discomfort [Unknown]
  - Coronary artery stenosis [Unknown]
